FAERS Safety Report 13040658 (Version 1)
Quarter: 2016Q4

REPORT INFORMATION
  Report Type: Spontaneous
  Country: US (occurrence: US)
  Receive Date: 20161219
  Receipt Date: 20161219
  Transmission Date: 20170207
  Serious: Yes (Other)
  Sender: FDA-Public Use
  Company Number: None

PATIENT
  Age: 37 Year
  Sex: Male
  Weight: 117 kg

DRUGS (7)
  1. LYRICA [Concomitant]
     Active Substance: PREGABALIN
  2. KLONOPIN [Concomitant]
     Active Substance: CLONAZEPAM
  3. FLEXERIL [Concomitant]
     Active Substance: CYCLOBENZAPRINE HYDROCHLORIDE
  4. AMLODIPINE [Concomitant]
     Active Substance: AMLODIPINE BESYLATE
  5. PRISTIQ EXTENDED-RELEASE [Suspect]
     Active Substance: DESVENLAFAXINE SUCCINATE
     Indication: ANXIETY
     Dosage: QUANTITY:1 CAPSULE(S); DAILY; ORAL?
     Route: 048
  6. PRISTIQ EXTENDED-RELEASE [Suspect]
     Active Substance: DESVENLAFAXINE SUCCINATE
     Indication: DEPRESSION
     Dosage: QUANTITY:1 CAPSULE(S); DAILY; ORAL?
     Route: 048
  7. PROTONIX [Concomitant]
     Active Substance: PANTOPRAZOLE SODIUM

REACTIONS (3)
  - Depression [None]
  - Medication residue present [None]
  - Withdrawal syndrome [None]

NARRATIVE: CASE EVENT DATE: 20161201
